FAERS Safety Report 15417963 (Version 1)
Quarter: 2018Q3

REPORT INFORMATION
  Report Type: Spontaneous
  Country: US (occurrence: US)
  Receive Date: 20180924
  Receipt Date: 20180924
  Transmission Date: 20181010
  Serious: No
  Sender: FDA-Public Use
  Company Number: US-SA-2018SA182867

PATIENT
  Age: 28 Year
  Sex: Female

DRUGS (3)
  1. CEREZYME [Suspect]
     Active Substance: IMIGLUCERASE
     Indication: GAUCHER^S DISEASE
     Dosage: UNK
     Route: 041
  2. CEREZYME [Suspect]
     Active Substance: IMIGLUCERASE
     Dosage: 4800 U, QOW
     Route: 041
     Dates: start: 20180627
  3. CERDELGA [Suspect]
     Active Substance: ELIGLUSTAT
     Dosage: UNK
     Route: 065
     Dates: end: 2018

REACTIONS (7)
  - Drug interaction [Unknown]
  - Panic attack [Unknown]
  - Incorrect drug administration rate [Unknown]
  - Burning sensation [Unknown]
  - Anxiety [Unknown]
  - Malaise [Unknown]
  - Vomiting [Unknown]

NARRATIVE: CASE EVENT DATE: 201803
